FAERS Safety Report 23410421 (Version 2)
Quarter: 2024Q2

REPORT INFORMATION
  Report Type: Spontaneous
  Country: US (occurrence: US)
  Receive Date: 20240117
  Receipt Date: 20240402
  Transmission Date: 20240716
  Serious: Yes (Other)
  Sender: FDA-Public Use
  Company Number: US-JAZZ PHARMACEUTICALS-2024-US-000637

PATIENT
  Sex: Female

DRUGS (1)
  1. XYWAV [Suspect]
     Active Substance: CALCIUM OXYBATE\MAGNESIUM OXYBATE\POTASSIUM OXYBATE\SODIUM OXYBATE
     Indication: Product used for unknown indication
     Dosage: UNK

REACTIONS (4)
  - Toxicity to various agents [Recovering/Resolving]
  - Depressed level of consciousness [Unknown]
  - Loss of consciousness [Unknown]
  - Extra dose administered [Unknown]
